FAERS Safety Report 10516450 (Version 2)
Quarter: 2014Q4

REPORT INFORMATION
  Report Type: Spontaneous
  Country: NL (occurrence: NL)
  Receive Date: 20141014
  Receipt Date: 20141014
  Transmission Date: 20150528
  Serious: Yes (Other)
  Sender: FDA-Public Use
  Company Number: NL-IPSEN BIOPHARMACEUTICALS, INC.-2014-4074

PATIENT
  Age: 84 Year
  Sex: Female

DRUGS (2)
  1. SOMATULINE AUTOGEL [Suspect]
     Active Substance: LANREOTIDE ACETATE
     Indication: RETINAL OEDEMA
     Dosage: 120 MG
     Route: 058
     Dates: start: 201406, end: 20140925
  2. SOMATULINE AUTOGEL [Suspect]
     Active Substance: LANREOTIDE ACETATE
     Indication: PRODUCT USE ISSUE
     Dosage: 90 MG
     Route: 058
     Dates: start: 201405, end: 201406

REACTIONS (4)
  - Inappropriate schedule of drug administration [Unknown]
  - Retinal detachment [Not Recovered/Not Resolved]
  - Vitreous degeneration [Unknown]
  - Drug ineffective for unapproved indication [Unknown]

NARRATIVE: CASE EVENT DATE: 2014
